FAERS Safety Report 11203497 (Version 1)
Quarter: 2015Q2

REPORT INFORMATION
  Report Type: Spontaneous
  Country: US (occurrence: US)
  Receive Date: 20150619
  Receipt Date: 20150619
  Transmission Date: 20150821
  Serious: Yes (Other)
  Sender: FDA-Public Use
  Company Number: US-ELI_LILLY_AND_COMPANY-US201506005940

PATIENT
  Sex: Female

DRUGS (4)
  1. ASPIRIN                            /00002701/ [Concomitant]
     Active Substance: ASPIRIN
  2. PROGESTERONE. [Concomitant]
     Active Substance: PROGESTERONE
  3. PROZAC [Suspect]
     Active Substance: FLUOXETINE HYDROCHLORIDE
     Indication: PRODUCT USED FOR UNKNOWN INDICATION
     Dosage: 20 MG, UNKNOWN
     Route: 065
  4. NIFEDIPINE. [Concomitant]
     Active Substance: NIFEDIPINE

REACTIONS (9)
  - Premature labour [Unknown]
  - Cervical incompetence [Unknown]
  - VIIth nerve paralysis [Recovered/Resolved]
  - Gestational diabetes [Unknown]
  - Breech presentation [Unknown]
  - Bladder injury [Recovered/Resolved]
  - Exposure during pregnancy [Recovered/Resolved]
  - Hypertension [Unknown]
  - Premature rupture of membranes [Unknown]
